FAERS Safety Report 5199294-7 (Version None)
Quarter: 2006Q4

REPORT INFORMATION
  Report Type: 
  Country: None (occurrence: None)
  Receive Date: 20061016
  Receipt Date: 20060615
  Transmission Date: 20070319
  Serious: No
  Sender: FDA-Public Use
  Company Number: 2006SP002435

PATIENT
  Age: 75 Year
  Sex: Male
  Weight: 68.0396 kg

DRUGS (1)
  1. LUNESTA [Suspect]
     Indication: INSOMNIA
     Dosage: 2 MG PRN ORAL
     Route: 048
     Dates: start: 20060101

REACTIONS (1)
  - DYSGEUSIA [None]
